FAERS Safety Report 14624948 (Version 3)
Quarter: 2018Q3

REPORT INFORMATION
  Report Type: Spontaneous
  Country: US (occurrence: US)
  Receive Date: 20180312
  Receipt Date: 20180724
  Transmission Date: 20181010
  Serious: Yes (Life-Threatening, Other)
  Sender: FDA-Public Use
  Company Number: US-BAYER-2018-033541

PATIENT
  Age: 60 Year

DRUGS (1)
  1. CORICIDIN HBP MAXIMUM STRENGTH FLU [Suspect]
     Active Substance: ACETAMINOPHEN\CHLORPHENIRAMINE MALEATE\DEXTROMETHORPHAN HYDROBROMIDE
     Dosage: UNK

REACTIONS (15)
  - Depression [None]
  - Homicidal ideation [None]
  - Illusion [Unknown]
  - Abnormal dreams [Unknown]
  - Hallucination [None]
  - Suicide attempt [None]
  - Nervous system disorder [Unknown]
  - Antisocial behaviour [Unknown]
  - Anger [Unknown]
  - Sleep disorder [Unknown]
  - Memory impairment [None]
  - Delusion [Unknown]
  - Confusional state [Unknown]
  - Mental disorder [None]
  - Psychotic disorder [Unknown]
